FAERS Safety Report 25102252 (Version 1)
Quarter: 2025Q1

REPORT INFORMATION
  Report Type: Spontaneous
  Country: JP (occurrence: JP)
  Receive Date: 20250320
  Receipt Date: 20250320
  Transmission Date: 20250409
  Serious: Yes (Death, Other)
  Sender: BRISTOL-MYERS SQUIBB COMPANY
  Company Number: JP-BRISTOL-MYERS SQUIBB COMPANY-2025-039092

PATIENT
  Age: 9 Decade
  Sex: Male

DRUGS (1)
  1. SOTYKTU [Suspect]
     Active Substance: DEUCRAVACITINIB
     Indication: Rash
     Route: 048
     Dates: start: 20240202, end: 20250306

REACTIONS (1)
  - Death [Fatal]

NARRATIVE: CASE EVENT DATE: 20250306
